FAERS Safety Report 8273947-6 (Version None)
Quarter: 2012Q2

REPORT INFORMATION
  Report Type: 
  Country: None (occurrence: None)
  Receive Date: 20120411
  Receipt Date: 20120322
  Transmission Date: 20120825
  Serious: No
  Sender: FDA-Public Use
  Company Number: US-ROXANE LABORATORIES, INC.-2012-RO-00918RO

PATIENT
  Sex: Female

DRUGS (4)
  1. LITHIUM CARBONATE [Suspect]
     Indication: BIPOLAR DISORDER
     Dosage: 600 MG
     Route: 048
  2. VITAMIN D [Concomitant]
  3. ACETAMINOPHEN [Concomitant]
  4. HALDOL [Concomitant]
     Indication: BIPOLAR DISORDER

REACTIONS (4)
  - ARTHRALGIA [None]
  - POLLAKIURIA [None]
  - DIZZINESS [None]
  - FATIGUE [None]
